FAERS Safety Report 5286450-2 (Version None)
Quarter: 2007Q2

REPORT INFORMATION
  Report Type: 
  Country: None (occurrence: None)
  Receive Date: 20070404
  Receipt Date: 20070326
  Transmission Date: 20071010
  Serious: Yes (Hospitalization)
  Sender: FDA-Public Use
  Company Number: MK-JNJFOC-20070306250

PATIENT
  Sex: Male
  Weight: 86 kg

DRUGS (1)
  1. LEUSTATIN [Suspect]
     Indication: HAIRY CELL LEUKAEMIA
     Route: 042

REACTIONS (1)
  - CEREBRAL HAEMORRHAGE [None]
